FAERS Safety Report 22193178 (Version 1)
Quarter: 2023Q2

REPORT INFORMATION
  Report Type: Other
  Country: US (occurrence: US)
  Receive Date: 20230410
  Receipt Date: 20230410
  Transmission Date: 20230722
  Serious: Yes (Death)
  Sender: FDA-Public Use
  Company Number: US-ALVOGEN-2023090105

PATIENT
  Age: 48 Year
  Sex: Female

DRUGS (6)
  1. GABAPENTIN [Suspect]
     Active Substance: GABAPENTIN
     Indication: Suicide attempt
  2. FENTANYL [Suspect]
     Active Substance: FENTANYL
     Indication: Suicide attempt
  3. TRAMADOL [Suspect]
     Active Substance: TRAMADOL
     Indication: Suicide attempt
  4. DIPHENHYDRAMINE [Suspect]
     Active Substance: DIPHENHYDRAMINE
     Indication: Suicide attempt
  5. AMLODIPINE [Suspect]
     Active Substance: AMLODIPINE BESYLATE
     Indication: Suicide attempt
  6. COCAINE [Suspect]
     Active Substance: COCAINE
     Indication: Suicide attempt

REACTIONS (1)
  - Completed suicide [Fatal]
